FAERS Safety Report 9492007 (Version 1)
Quarter: 2013Q3

REPORT INFORMATION
  Report Type: Spontaneous
  Country: US (occurrence: US)
  Receive Date: 20130830
  Receipt Date: 20130830
  Transmission Date: 20140515
  Serious: Yes (Other)
  Sender: FDA-Public Use
  Company Number: US-MYLANLABS-2013S1012584

PATIENT
  Age: 68 Year
  Sex: Female

DRUGS (1)
  1. SILDENAFIL TABLETS [Suspect]
     Indication: PULMONARY HYPERTENSION
     Route: 048
     Dates: start: 20130501, end: 20130512

REACTIONS (2)
  - Drug effect decreased [Recovered/Resolved]
  - Pulmonary hypertension [Recovered/Resolved]
